FAERS Safety Report 22299836 (Version 1)
Quarter: 2023Q2

REPORT INFORMATION
  Report Type: Spontaneous
  Country: US (occurrence: None)
  Receive Date: 20230509
  Receipt Date: 20230509
  Transmission Date: 20230721
  Serious: Yes (Other)
  Sender: FDA-Public Use
  Company Number: None

PATIENT
  Age: 80 Year
  Sex: Male
  Weight: 86.18 kg

DRUGS (13)
  1. PAXLOVID [Suspect]
     Active Substance: NIRMATRELVIR\RITONAVIR
     Indication: SARS-CoV-2 test positive
     Dates: start: 20230407, end: 20230411
  2. TRADJENTA [Concomitant]
     Active Substance: LINAGLIPTIN
  3. PIOGLITAZONE [Concomitant]
     Active Substance: PIOGLITAZONE
  4. LISINOPRIL [Concomitant]
     Active Substance: LISINOPRIL
  5. GLIMEPIRIDE [Concomitant]
     Active Substance: GLIMEPIRIDE
  6. PEPCID [Concomitant]
     Active Substance: FAMOTIDINE
  7. ROSASTATIN [Concomitant]
  8. LORATADINE [Concomitant]
     Active Substance: LORATADINE
  9. BERBERINE [Concomitant]
     Active Substance: BERBERINE
  10. VITAMIN C [Concomitant]
     Active Substance: ASCORBIC ACID
  11. NIACIN [Concomitant]
     Active Substance: NIACIN
  12. VITAMIN D3 [Concomitant]
     Active Substance: CHOLECALCIFEROL
  13. VIT B-12 [Concomitant]

REACTIONS (2)
  - Erythema [None]
  - Faeces discoloured [None]

NARRATIVE: CASE EVENT DATE: 20230408
